FAERS Safety Report 4348302-1 (Version None)
Quarter: 2004Q2

REPORT INFORMATION
  Report Type: 
  Country: None (occurrence: None)
  Receive Date: 20040422
  Receipt Date: 20040409
  Transmission Date: 20050107
  Serious: Yes (Hospitalization, Other)
  Sender: FDA-Public Use
  Company Number: 2004008081

PATIENT
  Age: 92 Year
  Sex: Female

DRUGS (8)
  1. ZYRTEC [Suspect]
     Indication: DERMATITIS
     Dosage: 10 MG, ORAL
     Route: 048
     Dates: start: 20040118, end: 20040126
  2. PILSICAINIDE HYDROCHLORIDE (PILSICAINIDE HYDROCHLORIDE) [Suspect]
     Indication: ATRIAL FIBRILLATION
     Dosage: 150 MG, ORAL
     Route: 048
     Dates: start: 20031101, end: 20040121
  3. LOSARTAN POTASSIUM [Concomitant]
  4. TICLOPIDINE HCL [Concomitant]
  5. FAMOTIDINE [Concomitant]
  6. PAROXETINE HCL [Concomitant]
  7. MENATETRENONE (MENATETRENONE) [Concomitant]
  8. FUROSEMIDE [Concomitant]

REACTIONS (9)
  - ARRHYTHMIA [None]
  - DRUG INTERACTION [None]
  - ELECTROCARDIOGRAM QRS COMPLEX PROLONGED [None]
  - ELECTROCARDIOGRAM QT PROLONGED [None]
  - FEMORAL NECK FRACTURE [None]
  - OVERDOSE [None]
  - PALPITATIONS [None]
  - RASH PRURITIC [None]
  - VENTRICULAR EXTRASYSTOLES [None]
